FAERS Safety Report 18632209 (Version 2)
Quarter: 2021Q1

REPORT INFORMATION
  Report Type: Spontaneous
  Country: US (occurrence: US)
  Receive Date: 20201218
  Receipt Date: 20210104
  Transmission Date: 20210419
  Serious: No
  Sender: FDA-Public Use
  Company Number: US-BEH-2020126102

PATIENT
  Age: 65 Year
  Weight: 26.3 kg

DRUGS (1)
  1. HIZENTRA [Suspect]
     Active Substance: HUMAN IMMUNOGLOBULIN G
     Indication: IMMUNODEFICIENCY COMMON VARIABLE
     Dosage: 16 GRAM, QW
     Route: 058
     Dates: start: 20201106

REACTIONS (5)
  - Pain in extremity [Unknown]
  - Feeling abnormal [Unknown]
  - Pain [Unknown]
  - Abdominal pain upper [Unknown]
  - Agitation [Unknown]

NARRATIVE: CASE EVENT DATE: 2020
